FAERS Safety Report 7425229-X (Version None)
Quarter: 2011Q2

REPORT INFORMATION
  Report Type: 
  Country: None (occurrence: None)
  Receive Date: 20110413
  Receipt Date: 20110407
  Transmission Date: 20111010
  Serious: Yes (Life-Threatening, Hospitalization, Disabling)
  Sender: FDA-Public Use
  Company Number: 2009SP043060

PATIENT
  Age: 20 Year
  Sex: Female
  Weight: 63.9572 kg

DRUGS (6)
  1. PHENTERMINE [Concomitant]
  2. LEXAPRO [Concomitant]
  3. NUVARING [Suspect]
     Indication: CONTRACEPTION
     Dates: start: 20051001, end: 20060201
  4. NUVARING [Suspect]
     Indication: CONTRACEPTION
     Dates: start: 20060401, end: 20060701
  5. PROZAC [Suspect]
     Indication: DEPRESSION
     Dates: start: 20060101
  6. TERAMIN [Concomitant]

REACTIONS (21)
  - BLOOD DISORDER [None]
  - PREGNANCY [None]
  - PAIN [None]
  - DEEP VEIN THROMBOSIS [None]
  - IMPAIRED WORK ABILITY [None]
  - MAY-THURNER SYNDROME [None]
  - HYPERCOAGULATION [None]
  - POSTOPERATIVE WOUND INFECTION [None]
  - SUICIDAL IDEATION [None]
  - ADNEXA UTERI CYST [None]
  - HYPERVENTILATION [None]
  - STRESS [None]
  - PARAESTHESIA ORAL [None]
  - PARAESTHESIA [None]
  - ACUTE SINUSITIS [None]
  - CARDIAC MURMUR [None]
  - THROMBOSIS [None]
  - DEPRESSION [None]
  - URINARY TRACT INFECTION [None]
  - BALANCE DISORDER [None]
  - ANXIETY [None]
